FAERS Safety Report 18007300 (Version 2)
Quarter: 2020Q3

REPORT INFORMATION
  Report Type: Spontaneous
  Country: US (occurrence: US)
  Receive Date: 20200710
  Receipt Date: 20200715
  Transmission Date: 20201103
  Serious: No
  Sender: FDA-Public Use
  Company Number: US-PFIZER INC-2020264879

PATIENT
  Age: 56 Year
  Sex: Male
  Weight: 77.11 kg

DRUGS (3)
  1. SILDENAFIL CITRATE. [Suspect]
     Active Substance: SILDENAFIL CITRATE
     Dosage: UNK
     Dates: start: 2016
  2. CIALIS [Suspect]
     Active Substance: TADALAFIL
     Dosage: UNK
  3. LEVITRA [Suspect]
     Active Substance: VARDENAFIL HYDROCHLORIDE
     Dosage: UNK

REACTIONS (1)
  - Drug ineffective [Unknown]
